FAERS Safety Report 11147837 (Version 1)
Quarter: 2015Q2

REPORT INFORMATION
  Report Type: Spontaneous
  Country: US (occurrence: US)
  Receive Date: 20150529
  Receipt Date: 20150529
  Transmission Date: 20150821
  Serious: Yes (Other)
  Sender: FDA-Public Use
  Company Number: US-ELI_LILLY_AND_COMPANY-US201505006966

PATIENT
  Sex: Female

DRUGS (3)
  1. HUMALOG [Suspect]
     Active Substance: INSULIN LISPRO
     Dosage: 25 U, EACH EVENING
     Route: 065
     Dates: start: 2005
  2. HUMALOG [Suspect]
     Active Substance: INSULIN LISPRO
     Indication: DIABETES MELLITUS
     Dosage: 15 U, AFTER MEALS
     Route: 065
     Dates: start: 2005
  3. LANTUS [Concomitant]
     Active Substance: INSULIN GLARGINE
     Dosage: 25 U, EACH EVENING

REACTIONS (4)
  - Cardiac failure congestive [Unknown]
  - Blood glucose increased [Unknown]
  - Cataract [Unknown]
  - Blood glucose decreased [Unknown]
